FAERS Safety Report 7747213-9 (Version None)
Quarter: 2011Q3

REPORT INFORMATION
  Report Type: 
  Country: None (occurrence: None)
  Receive Date: 20110913
  Receipt Date: 20110907
  Transmission Date: 20111222
  Serious: Yes (Other)
  Sender: FDA-Public Use
  Company Number: US-PFIZER INC-2011209841

PATIENT
  Sex: Female
  Weight: 63.039 kg

DRUGS (9)
  1. FEMARA [Suspect]
     Indication: BLOOD OESTROGEN INCREASED
  2. AROMASIN [Suspect]
     Indication: CANCER IN REMISSION
     Dosage: 25 MG, DAILY
     Route: 048
     Dates: start: 20110101, end: 20110101
  3. AROMASIN [Suspect]
     Indication: BLOOD OESTROGEN INCREASED
  4. TAMOXIFEN CITRATE [Suspect]
     Indication: BREAST CANCER
     Dosage: UNK
     Dates: start: 19991201
  5. PANTOTHENIC ACID [Concomitant]
     Dosage: UNK
  6. FEMARA [Suspect]
     Indication: CANCER IN REMISSION
     Dosage: UNK
     Dates: start: 20110111, end: 20110101
  7. VITAMIN D [Concomitant]
     Dosage: UNK
  8. CALCIUM [Concomitant]
     Dosage: UNK
  9. INDERAL [Concomitant]
     Dosage: AS NEEDED
     Route: 048

REACTIONS (12)
  - NASOPHARYNGITIS [None]
  - HEADACHE [None]
  - BODY TEMPERATURE INCREASED [None]
  - DECREASED APPETITE [None]
  - ACTIVITIES OF DAILY LIVING IMPAIRED [None]
  - MALAISE [None]
  - GASTRIC DISORDER [None]
  - CHILLS [None]
  - ASTHENIA [None]
  - WEIGHT INCREASED [None]
  - WEIGHT DECREASED [None]
  - DYSGEUSIA [None]
